FAERS Safety Report 4469994-2 (Version None)
Quarter: 2004Q3

REPORT INFORMATION
  Report Type: 
  Country: None (occurrence: None)
  Receive Date: 20040917
  Receipt Date: 20040730
  Transmission Date: 20050211
  Serious: Yes (Other)
  Sender: FDA-Public Use
  Company Number: 2004054287

PATIENT
  Age: 45 Year
  Sex: Female

DRUGS (19)
  1. VFEND [Suspect]
     Indication: INFECTION PROPHYLAXIS
     Dosage: 400 MG (200 MG, 2 IN 1 D), ORAL
     Route: 048
     Dates: start: 20040505, end: 20040728
  2. VALACICLOVIR HYDROCHLORIDE (VALACICLOVIR HYDROCHLORIDE) [Concomitant]
  3. PANCRELIPASE (PANCRELIPASE) [Concomitant]
  4. LEVOTHYROXINE SODIUM [Concomitant]
  5. PERDNISONE (PREDNISONE) [Concomitant]
  6. LANSOPRAZOLE [Concomitant]
  7. MULTIVITAMINS (ASCORBIC ACID, ERGOCALCIFEROL, FOLIC ACID, NICOTINAMIDE [Concomitant]
  8. CALCIUM (CALCIUM) [Concomitant]
  9. MAGNESIUM (MAGNESIUM) [Concomitant]
  10. LORAZEPAM [Concomitant]
  11. MUCOPHENOLATE MOFETIL (MYCOPHENOLATE MOFETIL) [Concomitant]
  12. ZOLEDRONIC ACID (ZOLEDRONIC ACID) [Concomitant]
  13. TACROLIMUS (TACROLIMUS) [Concomitant]
  14. POTASSIUM CHLORIDE [Concomitant]
  15. TUSSIONEX ^PENWALT^ (HYDROCODONE, PHENYLTOLOXAMINE) [Concomitant]
  16. ESCITALOPRAM (ESCITALOPRAM) [Concomitant]
  17. INSULIN [Concomitant]
  18. FLUCONAZOLE [Concomitant]
  19. ALL OTHER THERAPEUTIC PRODUCT (ALL OTHER THERAPEUTICA PRODUCTS) [Concomitant]

REACTIONS (3)
  - DERMATITIS [None]
  - DERMATITIS BULLOUS [None]
  - GRAFT VERSUS HOST DISEASE [None]
